FAERS Safety Report 8710604 (Version 2)
Quarter: 2012Q4

REPORT INFORMATION
  Report Type: 
  Country: DK (occurrence: DK)
  Receive Date: 20120807
  Receipt Date: 20120830
  Transmission Date: 20130627
  Serious: Yes (Other)
  Sender: FDA-Public Use
  Company Number: DK-BAYER-2012-076312

PATIENT
  Age: 58 Year
  Sex: Female

DRUGS (3)
  1. MIRENA [Suspect]
     Indication: HYPERHIDROSIS
     Dosage: 20 mg/24hr, CONT
     Dates: end: 201109
  2. MIRENA [Suspect]
     Indication: HYPERHIDROSIS
     Dosage: 20 mcg/24hr, CONT
     Route: 015
     Dates: start: 20111206, end: 20120404
  3. HORMONES NOS [Concomitant]

REACTIONS (1)
  - Breast cancer [None]
